FAERS Safety Report 21035691 (Version 7)
Quarter: 2022Q3

REPORT INFORMATION
  Report Type: Report from Study
  Country: BR (occurrence: BR)
  Receive Date: 20220701
  Receipt Date: 20220930
  Transmission Date: 20221027
  Serious: Yes (Hospitalization)
  Sender: FDA-Public Use
  Company Number: BR-PFIZER INC-PV202200011203

PATIENT
  Age: 55 Year
  Sex: Male
  Weight: 77.3 kg

DRUGS (2)
  1. TALAZOPARIB [Suspect]
     Active Substance: TALAZOPARIB
     Indication: Prostate cancer metastatic
     Dosage: UNK, 1X/DAY (ONCE PER DAY)
     Route: 048
     Dates: start: 20210310, end: 20220626
  2. ENZALUTAMIDE [Suspect]
     Active Substance: ENZALUTAMIDE
     Indication: Prostate cancer metastatic
     Dosage: 160 MG, 1X/DAY (ONCE PER DAY)
     Route: 048
     Dates: start: 20210310, end: 20220626

REACTIONS (1)
  - Hypercalcaemia [Recovered/Resolved]

NARRATIVE: CASE EVENT DATE: 20220626
